FAERS Safety Report 18619650 (Version 7)
Quarter: 2021Q1

REPORT INFORMATION
  Report Type: Spontaneous
  Country: US (occurrence: US)
  Receive Date: 20201215
  Receipt Date: 20210111
  Transmission Date: 20210419
  Serious: Yes (Hospitalization)
  Sender: FDA-Public Use
  Company Number: US-PFIZER INC-2020485293

PATIENT
  Age: 74 Year
  Sex: Female

DRUGS (2)
  1. DILANTIN?125 [Suspect]
     Active Substance: PHENYTOIN
     Dosage: 125 MG PHENYTOIN/5 ML, 8 OZ
  2. DILANTIN?125 [Suspect]
     Active Substance: PHENYTOIN
     Dosage: 125 MG PHENYTOIN/5 ML, 8 OZ

REACTIONS (10)
  - Illness [Unknown]
  - Regurgitation [Unknown]
  - Nausea [Unknown]
  - Dermatitis contact [Unknown]
  - Product storage error [Unknown]
  - Vomiting [Unknown]
  - Malabsorption from administration site [Unknown]
  - Wrong technique in product usage process [Unknown]
  - Product administration error [Unknown]
  - Rubber sensitivity [Unknown]
